FAERS Safety Report 11776920 (Version 2)
Quarter: 2015Q4

REPORT INFORMATION
  Report Type: Spontaneous
  Country: PT (occurrence: PT)
  Receive Date: 20151125
  Receipt Date: 20151204
  Transmission Date: 20160304
  Serious: Yes (Disabling)
  Sender: FDA-Public Use
  Company Number: PT-WATSON-2015-24811

PATIENT
  Age: 60 Year
  Sex: Male

DRUGS (8)
  1. OMEPRAZOLE. [Concomitant]
     Active Substance: OMEPRAZOLE
     Indication: ULCER
     Dosage: 20 MG, DAILY FASTING
     Route: 048
     Dates: start: 2010
  2. STUGERON [Concomitant]
     Active Substance: CINNARIZINE
     Indication: VERTIGO
     Dosage: 75 MG, DAILY AT BREAKFAST
     Route: 048
     Dates: start: 2012
  3. PERINDOPRIL [Concomitant]
     Active Substance: PERINDOPRIL
     Indication: HYPERTENSION
     Dosage: 4 MG, DAILY FASTING
     Route: 048
     Dates: start: 2014
  4. XANAX [Concomitant]
     Active Substance: ALPRAZOLAM
     Indication: ANXIETY
     Dosage: 0.5 MG AT NIGHT
     Route: 048
     Dates: start: 2005
  5. VOLTAREN [Concomitant]
     Active Substance: DICLOFENAC SODIUM
     Indication: PAIN
     Dosage: 75 MG, BID; AFTER BREAKFAST AND AT BEDTIME
     Route: 048
     Dates: start: 2007
  6. RAPAFLO [Suspect]
     Active Substance: SILODOSIN
     Dosage: 8 MG, DAILY
     Route: 065
     Dates: start: 20150903, end: 20150905
  7. RAPAFLO [Suspect]
     Active Substance: SILODOSIN
     Indication: PRODUCT USED FOR UNKNOWN INDICATION
     Dosage: 8 MG, DAILY
     Route: 065
     Dates: start: 20150715, end: 20150730
  8. XANAX [Concomitant]
     Active Substance: ALPRAZOLAM
     Indication: INSOMNIA

REACTIONS (2)
  - Dizziness [Recovered/Resolved]
  - Pain [Recovered/Resolved]

NARRATIVE: CASE EVENT DATE: 20150715
